FAERS Safety Report 17514744 (Version 2)
Quarter: 2020Q1

REPORT INFORMATION
  Report Type: Spontaneous
  Country: US (occurrence: US)
  Receive Date: 20200309
  Receipt Date: 20200320
  Transmission Date: 20200409
  Serious: Yes (Hospitalization, Other)
  Sender: FDA-Public Use
  Company Number: US-CIPLA LTD.-2020US01513

PATIENT

DRUGS (3)
  1. METANX [Suspect]
     Active Substance: LEVOMEFOLATE CALCIUM\METHYLCOBALAMIN\PYRIDOXAL PHOSPHATE ANHYDROUS
     Indication: PRODUCT USED FOR UNKNOWN INDICATION
     Dosage: UNK, QD
     Route: 065
  2. GABAPENTIN. [Suspect]
     Active Substance: GABAPENTIN
     Indication: NEUROPATHY PERIPHERAL
     Dosage: 300 MILLIGRAM, QD (AT NIGHT)
     Route: 065
     Dates: start: 202002
  3. VITAMIN D [VITAMIN D NOS] [Suspect]
     Active Substance: VITAMIN D NOS
     Indication: PRODUCT USED FOR UNKNOWN INDICATION
     Dosage: 2000 U, QD
     Route: 065

REACTIONS (13)
  - Unresponsive to stimuli [Recovered/Resolved]
  - Pain [Unknown]
  - Deep vein thrombosis [Unknown]
  - Suspected counterfeit product [Unknown]
  - Metabolic encephalopathy [Unknown]
  - Hallucination [Unknown]
  - Hepatic enzyme increased [Unknown]
  - Delusion [Unknown]
  - Acute kidney injury [Unknown]
  - Agitation [Not Recovered/Not Resolved]
  - Atrial fibrillation [Unknown]
  - Rhabdomyolysis [Unknown]
  - Cardiac failure congestive [Unknown]

NARRATIVE: CASE EVENT DATE: 2020
